FAERS Safety Report 8589208-1 (Version None)
Quarter: 2012Q3

REPORT INFORMATION
  Report Type: 
  Country: None (occurrence: None)
  Receive Date: 20120813
  Receipt Date: 20120813
  Transmission Date: 20120928
  Serious: Yes (Hospitalization, Other)
  Sender: FDA-Public Use
  Company Number: US-JNJFOC-20120314654

PATIENT
  Sex: Female

DRUGS (7)
  1. ENTOCORT EC [Concomitant]
     Indication: DIARRHOEA
     Route: 065
     Dates: start: 20120411
  2. REMICADE [Suspect]
     Indication: CROHN'S DISEASE
     Route: 042
     Dates: start: 20111219
  3. REMICADE [Suspect]
     Dosage: 3 VIALS
     Route: 042
     Dates: start: 20080317
  4. REMICADE [Suspect]
     Dosage: FOR TWO AND A HALF YEAR
     Route: 042
  5. PERCOCET [Concomitant]
     Indication: PAIN
     Dosage: 10/325
     Route: 065
     Dates: start: 20111014, end: 20120307
  6. ALL OTHER THERAPEUTIC DRUG [Concomitant]
     Indication: MUSCLE SPASMS
     Route: 065
     Dates: start: 20120118
  7. OPIUM TINCTURE [Concomitant]
     Indication: DIARRHOEA
     Dosage: 3CC
     Route: 065
     Dates: start: 20111014, end: 20120307

REACTIONS (5)
  - ANTI-PLATELET ANTIBODY [None]
  - PLEURISY [None]
  - ARTHRALGIA [None]
  - LUPUS-LIKE SYNDROME [None]
  - PLATELET COUNT DECREASED [None]
